FAERS Safety Report 13497987 (Version 1)
Quarter: 2017Q2

REPORT INFORMATION
  Report Type: Spontaneous
  Country: US (occurrence: US)
  Receive Date: 20170501
  Receipt Date: 20170501
  Transmission Date: 20170830
  Serious: No
  Sender: FDA-Public Use
  Company Number: PHEH2017US011805

PATIENT
  Sex: Female

DRUGS (1)
  1. RECLAST [Suspect]
     Active Substance: ZOLEDRONIC ACID
     Indication: PRODUCT USED FOR UNKNOWN INDICATION
     Route: 065

REACTIONS (8)
  - Influenza like illness [Not Recovered/Not Resolved]
  - Eye irritation [Unknown]
  - Eye inflammation [Unknown]
  - Ocular hyperaemia [Not Recovered/Not Resolved]
  - Eye pain [Unknown]
  - Eye swelling [Not Recovered/Not Resolved]
  - Pyrexia [Not Recovered/Not Resolved]
  - Myalgia [Unknown]
